FAERS Safety Report 8202829-0 (Version None)
Quarter: 2012Q1

REPORT INFORMATION
  Report Type: 
  Country: None (occurrence: None)
  Receive Date: 20120312
  Receipt Date: 20120312
  Transmission Date: 20120608
  Serious: Yes (Death)
  Sender: FDA-Public Use
  Company Number: None

PATIENT
  Age: 60 Year
  Sex: Female
  Weight: 90.718 kg

DRUGS (2)
  1. LEVAQUIN [Suspect]
     Indication: URINARY TRACT INFECTION
     Dosage: 1TAB
     Route: 048
     Dates: start: 20101020, end: 20101021
  2. LEVAQUIN [Concomitant]
     Dosage: 1TAB
     Route: 048
     Dates: start: 20101020, end: 20101021

REACTIONS (1)
  - HALLUCINATION [None]
